FAERS Safety Report 7157491-5 (Version None)
Quarter: 2010Q4

REPORT INFORMATION
  Report Type: 
  Country: None (occurrence: None)
  Receive Date: 20101214
  Receipt Date: 20101207
  Transmission Date: 20110411
  Serious: Yes (Other)
  Sender: FDA-Public Use
  Company Number: US-B.I. PHARMACEUTICALS,INC./RIDGEFIELD-2010-BP-13846BP

PATIENT

DRUGS (1)
  1. VIRAMUNE [Suspect]

REACTIONS (1)
  - STEVENS-JOHNSON SYNDROME [None]
